FAERS Safety Report 5202315-6 (Version None)
Quarter: 2007Q1

REPORT INFORMATION
  Report Type: 
  Country: None (occurrence: None)
  Receive Date: 20070109
  Receipt Date: 20061229
  Transmission Date: 20070707
  Serious: Yes (Disabling)
  Sender: FDA-Public Use
  Company Number: GB-ELI_LILLY_AND_COMPANY-GB200701000111

PATIENT
  Age: 61 Year
  Weight: 68 kg

DRUGS (6)
  1. GEMCITABINE HCL [Suspect]
     Indication: NON-SMALL CELL LUNG CANCER
     Dosage: 2200 MG, WEEKLY (1/W)
     Route: 042
     Dates: start: 20061123, end: 20061130
  2. CARBOPLATIN [Concomitant]
     Indication: NON-SMALL CELL LUNG CANCER
     Route: 042
     Dates: start: 20061123, end: 20061123
  3. NAPROXEN [Concomitant]
     Dosage: 500 MG, 2/D
     Route: 065
  4. PREGABALIN [Concomitant]
     Dosage: 150 MG, 2/D
     Route: 065
  5. SEVREDOL                                /UNK/ [Concomitant]
     Dosage: 10 MG, DAILY (1/D)
     Route: 065
  6. SEVREDOL                                /UNK/ [Concomitant]
     Dosage: 5 MG, 4/D
     Route: 065

REACTIONS (2)
  - CYANOSIS [None]
  - VASCULITIS [None]
